FAERS Safety Report 5450079-3 (Version None)
Quarter: 2007Q3

REPORT INFORMATION
  Report Type: 
  Country: None (occurrence: None)
  Receive Date: 20070912
  Receipt Date: 20070904
  Transmission Date: 20080115
  Serious: Yes (Death, Life-Threatening)
  Sender: FDA-Public Use
  Company Number: GB-MERCK-0709USA00469

PATIENT
  Age: 81 Year
  Sex: Male

DRUGS (6)
  1. PRINIVIL [Suspect]
     Route: 048
  2. ASPIRIN [Concomitant]
     Route: 065
  3. CALCICHEW [Concomitant]
     Route: 065
  4. INDAPAMIDE [Concomitant]
     Route: 065
  5. METFORMIN [Concomitant]
     Route: 065
  6. TOLBUTAMIDE [Concomitant]
     Route: 065

REACTIONS (1)
  - ANAPHYLACTIC SHOCK [None]
